FAERS Safety Report 24969561 (Version 1)
Quarter: 2025Q1

REPORT INFORMATION
  Report Type: Spontaneous
  Country: GB (occurrence: GB)
  Receive Date: 20250214
  Receipt Date: 20250214
  Transmission Date: 20250409
  Serious: Yes (Other)
  Sender: AUROBINDO
  Company Number: GB-MHRA-MED-202501291117416370-LWFGY

PATIENT
  Sex: Female

DRUGS (6)
  1. BISOPROLOL [Suspect]
     Active Substance: BISOPROLOL
     Indication: Extrasystoles
     Dosage: 1.25 MILLIGRAM, ONCE A DAY
     Route: 065
     Dates: start: 20250124
  2. LEVOTHYROXINE\LIOTHYRONINE [Concomitant]
     Active Substance: LEVOTHYROXINE\LIOTHYRONINE
     Indication: Product used for unknown indication
     Route: 065
  3. CANDESARTAN [Concomitant]
     Active Substance: CANDESARTAN
     Indication: Product used for unknown indication
     Route: 065
  4. UTROGESTAN [Concomitant]
     Active Substance: PROGESTERONE
     Indication: Product used for unknown indication
     Route: 065
  5. ESTRADIOL [Concomitant]
     Active Substance: ESTRADIOL
     Indication: Product used for unknown indication
     Route: 065
  6. LEVOTHYROXINE\LIOTHYRONINE [Concomitant]
     Active Substance: LEVOTHYROXINE\LIOTHYRONINE
     Indication: Product used for unknown indication
     Route: 065

REACTIONS (6)
  - Myalgia [Not Recovered/Not Resolved]
  - Chest pain [Not Recovered/Not Resolved]
  - Bradycardia [Not Recovered/Not Resolved]
  - Heart rate abnormal [Unknown]
  - Chest discomfort [Unknown]
  - Diarrhoea [Recovering/Resolving]

NARRATIVE: CASE EVENT DATE: 20250125
